FAERS Safety Report 16652578 (Version 1)
Quarter: 2019Q3

REPORT INFORMATION
  Report Type: Report from Study
  Country: US (occurrence: US)
  Receive Date: 20190731
  Receipt Date: 20190731
  Transmission Date: 20191004
  Serious: Yes (Hospitalization)
  Sender: FDA-Public Use
  Company Number: US-EISAI MEDICAL RESEARCH-EC-2018-043026

PATIENT
  Sex: Male
  Weight: 85.2 kg

DRUGS (14)
  1. LISINOPRIL. [Concomitant]
     Active Substance: LISINOPRIL
  2. AFINITOR [Concomitant]
     Active Substance: EVEROLIMUS
  3. HUMALOG [Concomitant]
     Active Substance: INSULIN LISPRO
  4. JANUMET [Concomitant]
     Active Substance: METFORMIN HYDROCHLORIDE\SITAGLIPTIN PHOSPHATE
  5. SERTRALINE [Concomitant]
     Active Substance: SERTRALINE HYDROCHLORIDE
  6. REPAGLINIDE-METFORMIN [Concomitant]
  7. AMOXICILLIN. [Concomitant]
     Active Substance: AMOXICILLIN
  8. LYRICA [Concomitant]
     Active Substance: PREGABALIN
  9. LENVIMA [Suspect]
     Active Substance: LENVATINIB
     Indication: RENAL CANCER
     Route: 048
     Dates: start: 20180703, end: 201907
  10. LEVEMIR [Concomitant]
     Active Substance: INSULIN DETEMIR
  11. PRAVASTATIN. [Concomitant]
     Active Substance: PRAVASTATIN
  12. ATORVASTATIN [Concomitant]
     Active Substance: ATORVASTATIN
  13. COLACE [Concomitant]
     Active Substance: DOCUSATE SODIUM
  14. TYLENOL [Concomitant]
     Active Substance: ACETAMINOPHEN

REACTIONS (15)
  - Pain [Not Recovered/Not Resolved]
  - Bone pain [Unknown]
  - Back pain [Not Recovered/Not Resolved]
  - Dysuria [Not Recovered/Not Resolved]
  - Nausea [Unknown]
  - Ageusia [Unknown]
  - Gallbladder disorder [Unknown]
  - Fatigue [Not Recovered/Not Resolved]
  - Diarrhoea [Not Recovered/Not Resolved]
  - Skin haemorrhage [Unknown]
  - Hypertension [Recovering/Resolving]
  - Skin exfoliation [Not Recovered/Not Resolved]
  - Myalgia [Unknown]
  - Oral disorder [Not Recovered/Not Resolved]
  - Feeling hot [Not Recovered/Not Resolved]

NARRATIVE: CASE EVENT DATE: 2018
